FAERS Safety Report 7449723-0 (Version None)
Quarter: 2011Q2

REPORT INFORMATION
  Report Type: 
  Country: None (occurrence: None)
  Receive Date: 20110421
  Receipt Date: 20110408
  Transmission Date: 20111010
  Serious: Yes (Death)
  Sender: FDA-Public Use
  Company Number: UTC-006243

PATIENT
  Age: 62 Year
  Sex: Female
  Weight: 75.3 kg

DRUGS (1)
  1. REMODULIN [Suspect]
     Indication: PULMONARY ARTERIAL HYPERTENSION
     Dosage: 90 UG/KG (0.0625 UG/KG, 1 IN 1 MIN) , SUBCUTANEOUS
     Route: 058
     Dates: start: 20051001

REACTIONS (1)
  - DEATH [None]
